FAERS Safety Report 13850059 (Version 2)
Quarter: 2018Q3

REPORT INFORMATION
  Report Type: Spontaneous
  Country: US (occurrence: US)
  Receive Date: 20170809
  Receipt Date: 20180801
  Transmission Date: 20181010
  Serious: Yes (Hospitalization, Other)
  Sender: FDA-Public Use
  Company Number: US-LUPIN (EUROPE) LIMITED-E2B_00006815

PATIENT
  Age: 32 Year
  Sex: Male
  Weight: 99.79 kg

DRUGS (1)
  1. LEVETIRACETAM TABLETS USP, 1000 MG [Suspect]
     Active Substance: LEVETIRACETAM
     Dosage: 1000 MG,BID,
     Route: 048
     Dates: start: 20161123

REACTIONS (3)
  - Partial seizures [Recovered/Resolved]
  - Drug ineffective [Unknown]
  - Seizure [Recovered/Resolved]

NARRATIVE: CASE EVENT DATE: 20161124
